FAERS Safety Report 9848070 (Version 1)
Quarter: 2014Q1

REPORT INFORMATION
  Report Type: Spontaneous
  Country: US (occurrence: None)
  Receive Date: 20140123
  Receipt Date: 20140123
  Transmission Date: 20141002
  Serious: Yes (Life-Threatening, Hospitalization)
  Sender: FDA-Public Use
  Company Number: None

PATIENT
  Age: 52 Year
  Sex: Male
  Weight: 94 kg

DRUGS (4)
  1. LISINOPRIL [Suspect]
     Dosage: 1 TABLET, QD, PO
     Route: 048
  2. SERTRALINE [Concomitant]
  3. GEMFIBROZIL [Concomitant]
  4. SIMVASTATIN [Concomitant]

REACTIONS (2)
  - Angioedema [None]
  - Product substitution issue [None]
